FAERS Safety Report 9215936 (Version 2)
Quarter: 2013Q2

REPORT INFORMATION
  Report Type: Spontaneous
  Country: US (occurrence: None)
  Receive Date: 20130405
  Receipt Date: 20130410
  Transmission Date: 20140414
  Serious: Yes (Other)
  Sender: FDA-Public Use
  Company Number: A1017993A

PATIENT
  Sex: Female

DRUGS (2)
  1. CALCIUM CARBONATE [Suspect]
     Indication: GASTROOESOPHAGEAL REFLUX DISEASE
     Dosage: UNKNOWN
  2. BISMUTH SUBSALICYLATE [Concomitant]

REACTIONS (3)
  - Rectal haemorrhage [None]
  - Drug administration error [None]
  - Pain [None]
